FAERS Safety Report 4627551-9 (Version None)
Quarter: 2005Q2

REPORT INFORMATION
  Report Type: 
  Country: None (occurrence: None)
  Receive Date: 20050405
  Receipt Date: 20050322
  Transmission Date: 20051028
  Serious: Yes (Hospitalization, Other)
  Sender: FDA-Public Use
  Company Number: 2005047851

PATIENT
  Age: 40 Year
  Sex: Female

DRUGS (1)
  1. BEXTRA [Suspect]
     Indication: FOOT OPERATION

REACTIONS (3)
  - HEPATIC ENZYME INCREASED [None]
  - MYOCARDIAL INFARCTION [None]
  - POST PROCEDURAL COMPLICATION [None]
